FAERS Safety Report 5092734-3 (Version None)
Quarter: 2006Q3

REPORT INFORMATION
  Report Type: 
  Country: None (occurrence: None)
  Receive Date: 20060828
  Receipt Date: 20060811
  Transmission Date: 20061208
  Serious: Yes (Hospitalization)
  Sender: FDA-Public Use
  Company Number: US-2006-022916

PATIENT
  Age: 34 Year
  Sex: Female

DRUGS (3)
  1. BETASERON [Suspect]
     Indication: MULTIPLE SCLEROSIS
     Dosage: 8 MIU, EVERY 2D, SUBCUTANEOUS
     Route: 058
     Dates: start: 20050501
  2. ANALGESICS [Suspect]
     Indication: MIGRAINE
     Dosage: INTRAVENOUS
     Route: 042
     Dates: start: 20060701
  3. EFFEXOR [Concomitant]

REACTIONS (6)
  - DEPRESSED MOOD [None]
  - HALLUCINATION [None]
  - HYPERSOMNIA [None]
  - INCORRECT DRUG ADMINISTRATION RATE [None]
  - INJECTION SITE PAIN [None]
  - MIGRAINE [None]
